FAERS Safety Report 8762328 (Version 1)
Quarter: 2012Q4

REPORT INFORMATION
  Report Type: Report from Study
  Country: BE (occurrence: BE)
  Receive Date: 20120830
  Receipt Date: 20120830
  Transmission Date: 20130627
  Serious: Yes (Death, Hospitalization)
  Sender: FDA-Public Use
  Company Number: BE-B.I. PHARMACEUTICALS,INC./RIDGEFIELD-2011-BL-00249BL

PATIENT
  Age: 94 Year
  Sex: Male
  Weight: 63 kg

DRUGS (8)
  1. PRADAXA [Suspect]
     Indication: ATRIAL FIBRILLATION
     Dosage: 220 mg
     Dates: start: 20111006, end: 20111104
  2. ESCITALOPRAM [Suspect]
     Dates: start: 201110, end: 201110
  3. MIRTAZAPINE [Suspect]
     Dates: start: 201110
  4. LASIX [Suspect]
     Dosage: 60 mg
     Route: 048
  5. RANITIDINE [Concomitant]
  6. LORAMET [Concomitant]
  7. EMCONCOR [Concomitant]
  8. PERFUSION [Concomitant]

REACTIONS (10)
  - Sepsis [Fatal]
  - Escherichia infection [Fatal]
  - Fall [Unknown]
  - Drug interaction [Unknown]
  - Confusional state [Unknown]
  - Cerebral haemangioma [Unknown]
  - Cerebral haemorrhage [Unknown]
  - Atrial fibrillation [Unknown]
  - Hypokalaemia [Unknown]
  - Depression [Unknown]
